FAERS Safety Report 8333744-X (Version None)
Quarter: 2012Q2

REPORT INFORMATION
  Report Type: 
  Country: None (occurrence: None)
  Receive Date: 20120503
  Receipt Date: 20120503
  Transmission Date: 20120825
  Serious: Yes (Other)
  Sender: FDA-Public Use
  Company Number: None

PATIENT
  Sex: Female

DRUGS (2)
  1. VENOFER [Suspect]
     Dosage: |DOSAGETEXT: 500 MG/250 ML NS OVER 3.5 HRS||FREQ: ONCE||ROUTE: INTRAVENOUS (NOT OTHERWISE SPECIFIED)
     Route: 042
     Dates: start: 20120423, end: 20120423
  2. NS [Suspect]

REACTIONS (6)
  - PARAESTHESIA [None]
  - PAIN IN EXTREMITY [None]
  - JOINT SWELLING [None]
  - BACK PAIN [None]
  - BLOOD PRESSURE INCREASED [None]
  - OEDEMA PERIPHERAL [None]
